FAERS Safety Report 8160834-7 (Version None)
Quarter: 2012Q1

REPORT INFORMATION
  Report Type: 
  Country: None (occurrence: None)
  Receive Date: 20120223
  Receipt Date: 20120218
  Transmission Date: 20120608
  Serious: Yes (Other)
  Sender: FDA-Public Use
  Company Number: PHHY2012MX014350

PATIENT
  Age: 58 Year
  Sex: Female

DRUGS (7)
  1. ACETYLSALICYLIC ACID SRT [Concomitant]
     Indication: BLOOD PRESSURE ABNORMAL
     Dosage: 1 DF, DAILY
  2. ACETYLSALICYLIC ACID SRT [Concomitant]
     Indication: MALAISE
  3. DIOVAN HCT [Suspect]
     Indication: HYPERTENSION
     Dosage: 1 DF, 160 MG VAL/25 MG HYDRO DAILY
     Dates: start: 20120101
  4. PLATIBAL [Concomitant]
     Indication: SLEEP DISORDER
     Dosage: 1 DF, DAILY
     Dates: start: 20111201
  5. CAPTOPRIL [Concomitant]
     Indication: BLOOD PRESSURE ABNORMAL
     Dosage: 1 DF, DAILY
     Dates: start: 20060101
  6. DIAPROTEC [Concomitant]
     Dosage: 1 DF, DAILY
     Dates: start: 20111201
  7. CAPTOPRIL [Concomitant]
     Indication: HEADACHE

REACTIONS (2)
  - HEADACHE [None]
  - EYE HAEMORRHAGE [None]
